FAERS Safety Report 6890498-1 (Version None)
Quarter: 2010Q3

REPORT INFORMATION
  Report Type: 
  Country: None (occurrence: None)
  Receive Date: 20100731
  Receipt Date: 20081115
  Transmission Date: 20110219
  Serious: No
  Sender: FDA-Public Use
  Company Number: US-PFIZER INC-2006036571

PATIENT
  Sex: Female
  Weight: 57.15 kg

DRUGS (5)
  1. LIPITOR [Suspect]
     Indication: BLOOD CHOLESTEROL INCREASED
     Route: 048
     Dates: start: 20081006
  2. LIPITOR [Suspect]
     Indication: TRANSIENT ISCHAEMIC ATTACK
  3. PINDOLOL [Concomitant]
     Indication: HYPERTENSION
     Dates: start: 20081006, end: 20081027
  4. PREDNISONE [Concomitant]
  5. LISINOPRIL [Concomitant]

REACTIONS (4)
  - ABDOMINAL PAIN UPPER [None]
  - CONTRAINDICATION TO MEDICAL TREATMENT [None]
  - DIARRHOEA [None]
  - MUSCLE SPASMS [None]
